FAERS Safety Report 23313242 (Version 1)
Quarter: 2023Q4

REPORT INFORMATION
  Report Type: Spontaneous
  Country: US (occurrence: US)
  Receive Date: 20231219
  Receipt Date: 20231219
  Transmission Date: 20240110
  Serious: No
  Sender: FDA-Public Use
  Company Number: US-SA-SAC20231212000970

PATIENT
  Age: 59 Year
  Sex: Female

DRUGS (3)
  1. DUPIXENT [Suspect]
     Active Substance: DUPILUMAB
     Indication: Dermatitis atopic
     Dosage: 300 MG, QOW
     Route: 058
     Dates: start: 202112
  2. PREDNISONE [Suspect]
     Active Substance: PREDNISONE
     Indication: Bronchitis
     Dosage: UNK
     Dates: start: 202312
  3. CLOBETASOL [Concomitant]
     Active Substance: CLOBETASOL
     Indication: Rash
     Route: 061

REACTIONS (5)
  - Bronchitis [Unknown]
  - Cough [Unknown]
  - Dyspnoea [Unknown]
  - Pain [Unknown]
  - Oral candidiasis [Unknown]

NARRATIVE: CASE EVENT DATE: 20231201
